FAERS Safety Report 22350986 (Version 2)
Quarter: 2023Q2

REPORT INFORMATION
  Report Type: Spontaneous
  Country: US (occurrence: None)
  Receive Date: 20230522
  Receipt Date: 20230626
  Transmission Date: 20230721
  Serious: Yes (Hospitalization)
  Sender: FDA-Public Use
  Company Number: 2023A117500

PATIENT
  Sex: Female

DRUGS (2)
  1. SAPHNELO [Suspect]
     Active Substance: ANIFROLUMAB-FNIA
     Indication: Systemic lupus erythematosus
     Route: 042
     Dates: start: 20230504
  2. SAPHNELO [Concomitant]
     Active Substance: ANIFROLUMAB-FNIA

REACTIONS (3)
  - Liver function test increased [Unknown]
  - Pyrexia [Unknown]
  - Rash [Unknown]
